FAERS Safety Report 4722589-5 (Version None)
Quarter: 2005Q3

REPORT INFORMATION
  Report Type: 
  Country: None (occurrence: None)
  Receive Date: 20050719
  Receipt Date: 20040928
  Transmission Date: 20060218
  Serious: Yes (Other)
  Sender: FDA-Public Use
  Company Number: 2004236360US

PATIENT
  Sex: Female

DRUGS (1)
  1. CELEBREX [Suspect]
     Indication: JOINT INJURY
     Dosage: 200 MG, QD,
     Dates: start: 20000401, end: 20000711

REACTIONS (7)
  - DYSPNOEA [None]
  - HEADACHE [None]
  - MUSCLE SPASMS [None]
  - RECTAL HAEMORRHAGE [None]
  - REFLUX OESOPHAGITIS [None]
  - VISION BLURRED [None]
  - WEIGHT INCREASED [None]
